FAERS Safety Report 19641848 (Version 2)
Quarter: 2023Q4

REPORT INFORMATION
  Report Type: Spontaneous
  Country: FR (occurrence: FR)
  Receive Date: 20210730
  Receipt Date: 20231106
  Transmission Date: 20240110
  Serious: Yes (Hospitalization, Disabling, Other)
  Sender: FDA-Public Use
  Company Number: None

PATIENT
  Age: 85 Year
  Sex: Male
  Weight: 58.4 kg

DRUGS (7)
  1. COMIRNATY (TOZINAMERAN) [Suspect]
     Active Substance: TOZINAMERAN
     Indication: COVID-19 immunisation
     Dosage: DOSE 2, SINGLE
     Route: 030
     Dates: start: 20210330, end: 20210330
  2. ATORVASTATIN [Suspect]
     Active Substance: ATORVASTATIN
     Dosage: 10 MG, 1X/DAY
     Route: 048
  3. LEVOTHYROXINE [Suspect]
     Active Substance: LEVOTHYROXINE
     Indication: Hypothyroidism
     Dosage: 1 TABLET IN THE MORNING
     Route: 048
  4. SOTALOL [Suspect]
     Active Substance: SOTALOL
     Dosage: 80 MG, 1X/DAY
     Route: 048
  5. KARDEGIC [Suspect]
     Active Substance: ASPIRIN DL-LYSINE
     Indication: Cardiovascular event prophylaxis
     Dosage: 1 SACHET PER DAY
     Route: 048
  6. CHOLECALCIFEROL [Concomitant]
     Active Substance: CHOLECALCIFEROL
     Dosage: 1 VIAL EVERY 3 MONTHS
  7. DICLOFENAC [Concomitant]
     Active Substance: DICLOFENAC
     Dosage: 1 APPLICATION IN THE MORNING AND EVENING

REACTIONS (14)
  - Ischaemic stroke [Recovered/Resolved with Sequelae]
  - Epilepsy [Unknown]
  - Coma scale abnormal [Unknown]
  - Deafness [Unknown]
  - Atrial fibrillation [Unknown]
  - Blood pressure increased [Unknown]
  - Fall [Unknown]
  - Mixed anxiety and depressive disorder [Unknown]
  - Computerised tomogram head abnormal [Unknown]
  - Sinus bradycardia [Unknown]
  - Sinus arrhythmia [Unknown]
  - Computerised tomogram abnormal [Unknown]
  - Alanine aminotransferase decreased [Unknown]
  - Haemoglobin decreased [Unknown]

NARRATIVE: CASE EVENT DATE: 20210601
